FAERS Safety Report 19199975 (Version 1)
Quarter: 2021Q2

REPORT INFORMATION
  Report Type: Spontaneous
  Country: US (occurrence: US)
  Receive Date: 20210429
  Receipt Date: 20210429
  Transmission Date: 20210717
  Serious: Yes (Other)
  Sender: FDA-Public Use
  Company Number: US-PFIZER INC-2021411926

PATIENT
  Age: 61 Year
  Sex: Female

DRUGS (1)
  1. ESTRING [Suspect]
     Active Substance: ESTRADIOL
     Dosage: UNK
     Dates: start: 202103

REACTIONS (3)
  - Candida infection [Unknown]
  - Vaginal infection [Unknown]
  - Enterococcal infection [Unknown]

NARRATIVE: CASE EVENT DATE: 202104
